FAERS Safety Report 24304165 (Version 1)
Quarter: 2024Q3

REPORT INFORMATION
  Report Type: Spontaneous
  Country: GB (occurrence: GB)
  Receive Date: 20240910
  Receipt Date: 20240910
  Transmission Date: 20241017
  Serious: Yes (Disabling, Other)
  Sender: PFIZER
  Company Number: None

PATIENT
  Age: 69 Year
  Sex: Female
  Weight: 78 kg

DRUGS (2)
  1. SULFASALAZINE [Suspect]
     Active Substance: SULFASALAZINE
     Indication: Arthralgia
     Dosage: 1000 MG, 2X/DAY (Q12H)
  2. SECUKINUMAB [Concomitant]
     Active Substance: SECUKINUMAB
     Indication: Psoriatic arthropathy

REACTIONS (8)
  - Ageusia [Not Recovered/Not Resolved]
  - Dysgeusia [Not Recovered/Not Resolved]
  - Paraesthesia oral [Recovering/Resolving]
  - Stomatitis [Recovering/Resolving]
  - Mouth swelling [Recovering/Resolving]
  - Swollen tongue [Recovering/Resolving]
  - Lip swelling [Recovering/Resolving]
  - Off label use [Unknown]
